FAERS Safety Report 13201554 (Version 1)
Quarter: 2017Q1

REPORT INFORMATION
  Report Type: Spontaneous
  Country: US (occurrence: US)
  Receive Date: 20170208
  Receipt Date: 20170208
  Transmission Date: 20170428
  Serious: No
  Sender: FDA-Public Use
  Company Number: US-AMGEN-USASP2016069479

PATIENT

DRUGS (1)
  1. NEULASTA [Suspect]
     Active Substance: PEGFILGRASTIM
     Indication: PRODUCT USED FOR UNKNOWN INDICATION
     Dosage: UNK UNK, UNK
     Route: 065

REACTIONS (7)
  - Adverse event [Unknown]
  - Mouth ulceration [Unknown]
  - Epistaxis [Unknown]
  - Haemorrhoids [Unknown]
  - Dry skin [Unknown]
  - Pyrexia [Unknown]
  - Feeling abnormal [Unknown]
